FAERS Safety Report 21312905 (Version 1)
Quarter: 2022Q3

REPORT INFORMATION
  Report Type: Spontaneous
  Country: SE (occurrence: SE)
  Receive Date: 20220909
  Receipt Date: 20220909
  Transmission Date: 20221026
  Serious: Yes (Other)
  Sender: FDA-Public Use
  Company Number: SE-TEVA-2022-SE-2070417

PATIENT
  Sex: Male

DRUGS (1)
  1. DONEPEZIL HYDROCHLORIDE [Suspect]
     Active Substance: DONEPEZIL HYDROCHLORIDE
     Indication: Product used for unknown indication
     Route: 048

REACTIONS (6)
  - Arrhythmia [Unknown]
  - Renal impairment [Unknown]
  - Fatigue [Unknown]
  - Weight decreased [Unknown]
  - Abdominal pain [Unknown]
  - Diarrhoea [Unknown]
